FAERS Safety Report 18435987 (Version 1)
Quarter: 2020Q4

REPORT INFORMATION
  Report Type: Spontaneous
  Country: US (occurrence: US)
  Receive Date: 20201028
  Receipt Date: 20201028
  Transmission Date: 20210114
  Serious: No
  Sender: FDA-Public Use
  Company Number: None

PATIENT
  Age: 75 Year
  Sex: Female
  Weight: 60.3 kg

DRUGS (6)
  1. PRILIA [Concomitant]
  2. BASAGLAR [Suspect]
     Active Substance: INSULIN GLARGINE
     Indication: TYPE 1 DIABETES MELLITUS
     Dosage: ?          QUANTITY:5 UNITS;?
     Route: 058
  3. LEVOTHYROXINE. [Concomitant]
     Active Substance: LEVOTHYROXINE
  4. VITAMIN B12 [Concomitant]
     Active Substance: CYANOCOBALAMIN
  5. LISINOPRIL. [Concomitant]
     Active Substance: LISINOPRIL
  6. NOVOLOG [Concomitant]
     Active Substance: INSULIN ASPART

REACTIONS (5)
  - Swelling [None]
  - Incorrect dose administered by device [None]
  - Blood glucose decreased [None]
  - Weight increased [None]
  - Therapeutic product effect increased [None]

NARRATIVE: CASE EVENT DATE: 20200831
